FAERS Safety Report 25097351 (Version 1)
Quarter: 2025Q1

REPORT INFORMATION
  Report Type: Spontaneous
  Country: AU (occurrence: AU)
  Receive Date: 20250320
  Receipt Date: 20250320
  Transmission Date: 20250409
  Serious: Yes (Death, Other)
  Sender: AMGEN
  Company Number: AU-AMGEN-AUSSP2025051241

PATIENT

DRUGS (1)
  1. MVASI [Suspect]
     Active Substance: BEVACIZUMAB-AWWB
     Indication: Diabetic retinal oedema

REACTIONS (5)
  - Death [Fatal]
  - Bacterial endophthalmitis [Unknown]
  - Enterococcal infection [Unknown]
  - Cognitive disorder [Unknown]
  - Off label use [Unknown]
